FAERS Safety Report 12135479 (Version 5)
Quarter: 2017Q2

REPORT INFORMATION
  Report Type: Spontaneous
  Country: US (occurrence: US)
  Receive Date: 20160302
  Receipt Date: 20170607
  Transmission Date: 20170829
  Serious: Yes (Other)
  Sender: FDA-Public Use
  Company Number: US-JNJFOC-20160206067

PATIENT
  Age: 13 Year
  Sex: Male

DRUGS (9)
  1. RISPERDAL [Suspect]
     Active Substance: RISPERIDONE
     Indication: ANXIETY
     Route: 048
     Dates: start: 20040325, end: 20040414
  2. RISPERDAL [Suspect]
     Active Substance: RISPERIDONE
     Indication: ATTENTION DEFICIT/HYPERACTIVITY DISORDER
     Route: 048
     Dates: start: 20040415, end: 20040922
  3. RISPERDAL [Suspect]
     Active Substance: RISPERIDONE
     Indication: DEPRESSION
     Route: 048
     Dates: start: 20041124, end: 20060301
  4. RISPERDAL [Suspect]
     Active Substance: RISPERIDONE
     Indication: DEPRESSION
     Route: 048
     Dates: start: 20040415, end: 20040922
  5. RISPERDAL [Suspect]
     Active Substance: RISPERIDONE
     Indication: ANXIETY
     Route: 048
     Dates: start: 20040415, end: 20040922
  6. RISPERDAL [Suspect]
     Active Substance: RISPERIDONE
     Indication: ATTENTION DEFICIT/HYPERACTIVITY DISORDER
     Route: 048
     Dates: start: 20040325, end: 20040414
  7. RISPERDAL [Suspect]
     Active Substance: RISPERIDONE
     Indication: ATTENTION DEFICIT/HYPERACTIVITY DISORDER
     Route: 048
     Dates: start: 20041124, end: 20060301
  8. RISPERDAL [Suspect]
     Active Substance: RISPERIDONE
     Indication: DEPRESSION
     Route: 048
     Dates: start: 20040325, end: 20040414
  9. RISPERDAL [Suspect]
     Active Substance: RISPERIDONE
     Indication: ANXIETY
     Route: 048
     Dates: start: 20041124, end: 20060301

REACTIONS (4)
  - Gynaecomastia [Unknown]
  - Off label use [Unknown]
  - Abnormal weight gain [Unknown]
  - Product use in unapproved indication [Unknown]

NARRATIVE: CASE EVENT DATE: 20040325
